FAERS Safety Report 24265371 (Version 2)
Quarter: 2024Q3

REPORT INFORMATION
  Report Type: Spontaneous
  Country: US (occurrence: US)
  Receive Date: 20240829
  Receipt Date: 20240912
  Transmission Date: 20241017
  Serious: Yes (Hospitalization, Other)
  Sender: MERCK
  Company Number: US-009507513-2408USA008395

PATIENT
  Sex: Female
  Weight: 55.3 kg

DRUGS (10)
  1. KEYTRUDA [Suspect]
     Active Substance: PEMBROLIZUMAB
     Indication: Triple negative breast cancer
     Dosage: 200 MILLIGRAM, Q3W
     Route: 042
     Dates: start: 20231110, end: 2023
  2. KEYTRUDA [Suspect]
     Active Substance: PEMBROLIZUMAB
     Dosage: 200 MILLIGRAM, Q3W
     Route: 042
     Dates: start: 20231201, end: 20231201
  3. KEYTRUDA [Suspect]
     Active Substance: PEMBROLIZUMAB
     Dosage: 200 MILLIGRAM, Q3W
     Route: 042
     Dates: start: 20240628, end: 2024
  4. KEYTRUDA [Suspect]
     Active Substance: PEMBROLIZUMAB
     Dosage: 200 MILLIGRAM, Q3W, CYCLE 12
     Route: 042
     Dates: start: 20240726
  5. ABRAXANE [Suspect]
     Active Substance: PACLITAXEL
     Indication: Triple negative breast cancer
     Dosage: 149 MILLIGRAM
     Route: 042
     Dates: start: 20231110, end: 20240802
  6. ABRAXANE [Suspect]
     Active Substance: PACLITAXEL
     Dosage: UNK
     Route: 042
     Dates: start: 202408, end: 20240821
  7. ALBUTEROL SULFATE [Concomitant]
     Active Substance: ALBUTEROL SULFATE
     Indication: Wheezing
     Dosage: INHALE 2 PUFFS EVERY 4 HOURS AS NEEDED (PRN)
     Route: 055
     Dates: start: 20211109
  8. ALBUTEROL SULFATE [Concomitant]
     Active Substance: ALBUTEROL SULFATE
     Indication: Dyspnoea
  9. KLOR-CON M20 [Concomitant]
     Active Substance: POTASSIUM CHLORIDE
     Dosage: 1 TABLET, Q12H
     Route: 048
     Dates: start: 20240731
  10. PSYLLIUM HUSKS [Concomitant]
     Active Substance: PSYLLIUM HUSK
     Indication: Constipation
     Dosage: STRENGTH: 3.4 GRAM/5.4 GRAM POWDER, 1 ROUDED TEASPOON MIX IN 8 OZ OF LIQUID TWO TIMES DAILY
     Dates: start: 20240312

REACTIONS (13)
  - Hypokalaemia [Unknown]
  - Metabolic acidosis [Unknown]
  - Immune-mediated enterocolitis [Unknown]
  - Immune-mediated enterocolitis [Recovered/Resolved]
  - Nephrolithiasis [Unknown]
  - Myocardial infarction [Unknown]
  - Neuropathy peripheral [Unknown]
  - Anaemia [Unknown]
  - Cortisol increased [Unknown]
  - Diverticulum intestinal [Unknown]
  - Serum ferritin increased [Unknown]
  - Vitamin B12 increased [Unknown]
  - Malnutrition [Unknown]

NARRATIVE: CASE EVENT DATE: 20230101
